FAERS Safety Report 21657548 (Version 1)
Quarter: 2022Q4

REPORT INFORMATION
  Report Type: Spontaneous
  Country: EG (occurrence: EG)
  Receive Date: 20221129
  Receipt Date: 20221129
  Transmission Date: 20230113
  Serious: Yes (Death, Other)
  Sender: FDA-Public Use
  Company Number: EG-AMGEN-EGYSP2022204189

PATIENT

DRUGS (7)
  1. FILGRASTIM [Suspect]
     Active Substance: FILGRASTIM
     Indication: Prophylaxis
     Dosage: 5 MICROGRAM/KILOGRAM, ON DAYS 4-6 OF EACH CYCLE
     Route: 058
  2. PITAVASTATIN [Concomitant]
     Active Substance: PITAVASTATIN
     Indication: Breast cancer female
     Dosage: 2 MILLIGRAM, QD
     Route: 048
  3. DOXORUBICIN [Concomitant]
     Active Substance: DOXORUBICIN
     Indication: Breast cancer female
     Dosage: 60 MILLIGRAM/SQ. METER
     Route: 040
  4. CYCLOPHOSPHAMIDE [Concomitant]
     Active Substance: CYCLOPHOSPHAMIDE
     Indication: Breast cancer female
     Dosage: 600 MILLIGRAM/SQ. METER
     Route: 040
  5. PACLITAXEL [Concomitant]
     Active Substance: PACLITAXEL
     Indication: Breast cancer female
     Dosage: 175 MILLIGRAM/SQ. METER, Y 4 CYCLES OF DOSE DENSE
     Route: 040
  6. ZOFRAN [Concomitant]
     Active Substance: ONDANSETRON HYDROCHLORIDE
     Indication: Antiemetic supportive care
     Dosage: 8 MILLIGRAM, 30 MIN BEFORE CHEMOTHERAPY
     Route: 040
  7. DEXAMETHASONE [Concomitant]
     Active Substance: DEXAMETHASONE
     Indication: Antiemetic supportive care
     Dosage: 8 MILLIGRAM, 30 MIN BEFORE CHEMOTHERAPY
     Route: 040

REACTIONS (2)
  - COVID-19 [Fatal]
  - Breast cancer metastatic [Unknown]
